FAERS Safety Report 14961391 (Version 1)
Quarter: 2018Q2

REPORT INFORMATION
  Report Type: Spontaneous
  Country: US (occurrence: US)
  Receive Date: 20180601
  Receipt Date: 20180601
  Transmission Date: 20180711
  Serious: Yes (Other)
  Sender: FDA-Public Use
  Company Number: PHHY2018US007578

PATIENT

DRUGS (8)
  1. BUPRENORPHINE. [Suspect]
     Active Substance: BUPRENORPHINE
     Indication: FOETAL EXPOSURE DURING PREGNANCY
     Dosage: MATERNAL DOSE: 16 MG, BID
     Route: 064
  2. CLONIDINE. [Suspect]
     Active Substance: CLONIDINE
     Indication: FOETAL EXPOSURE DURING PREGNANCY
     Dosage: MATERNAL DOSE: 100 MCG/ML
     Route: 064
  3. FENTANYL. [Suspect]
     Active Substance: FENTANYL
     Indication: FOETAL EXPOSURE DURING PREGNANCY
     Dosage: MATERNAL DOSE: 10 MCG/ML
     Route: 064
  4. EPHEDRINE. [Suspect]
     Active Substance: EPHEDRINE
     Indication: FOETAL EXPOSURE DURING PREGNANCY
     Dosage: UNK
     Route: 064
  5. BUPIVACAINE. [Suspect]
     Active Substance: BUPIVACAINE
     Dosage: MATERNAL DOSE: 0.0625%
     Route: 064
  6. PHENYLEPHRINE [Suspect]
     Active Substance: PHENYLEPHRINE\PHENYLEPHRINE HYDROCHLORIDE
     Indication: FOETAL EXPOSURE DURING PREGNANCY
     Dosage: UNK
     Route: 064
  7. BUPIVACAINE. [Suspect]
     Active Substance: BUPIVACAINE
     Indication: FOETAL EXPOSURE DURING PREGNANCY
     Dosage: MATERNAL DOSE: 1.2 MG
     Route: 064
  8. EPINEPHRINE. [Suspect]
     Active Substance: EPINEPHRINE
     Indication: FOETAL EXPOSURE DURING PREGNANCY
     Dosage: MATERNAL DOSE: 1.2 MCG/ML
     Route: 064

REACTIONS (2)
  - Premature baby [Unknown]
  - Foetal exposure during pregnancy [Unknown]
